FAERS Safety Report 4881277-5 (Version None)
Quarter: 2005Q4

REPORT INFORMATION
  Report Type: 
  Country: None (occurrence: None)
  Receive Date: 20051201
  Receipt Date: 20050728
  Transmission Date: 20060501
  Serious: No
  Sender: FDA-Public Use
  Company Number: 2005PV000680

PATIENT
  Age: 72 Year
  Sex: Male
  Weight: 83.0083 kg

DRUGS (2)
  1. BYETTA [Suspect]
     Indication: DIABETES MELLITUS NON-INSULIN-DEPENDENT
     Dosage: 5 MCG;BID;SC
     Route: 058
     Dates: start: 20050702
  2. STARLIX [Concomitant]

REACTIONS (6)
  - DYSGEUSIA [None]
  - ERUCTATION [None]
  - NAUSEA [None]
  - SALIVARY HYPERSECRETION [None]
  - THERAPEUTIC RESPONSE UNEXPECTED [None]
  - WEIGHT DECREASED [None]
